FAERS Safety Report 13286816 (Version 1)
Quarter: 2017Q1

REPORT INFORMATION
  Report Type: Spontaneous
  Country: CA (occurrence: CA)
  Receive Date: 20170302
  Receipt Date: 20170302
  Transmission Date: 20170428
  Serious: Yes (Other)
  Sender: FDA-Public Use
  Company Number: CA-TEVA-744558ACC

PATIENT
  Age: 68 Year
  Sex: Female

DRUGS (5)
  1. TEVA-RAMIPRIL [Concomitant]
     Active Substance: RAMIPRIL
  2. TEVA-ROSUVASTATIN [Suspect]
     Active Substance: ROSUVASTATIN
     Indication: LIPIDS INCREASED
     Dosage: 5 MILLIGRAM DAILY;
     Route: 065
  3. APO-RAMIPRIL [Concomitant]
     Active Substance: RAMIPRIL
  4. APO-ROSUVASTATIN [Concomitant]
     Active Substance: ROSUVASTATIN
     Dosage: 5 MILLIGRAM DAILY;
  5. PLAVIX [Concomitant]
     Active Substance: CLOPIDOGREL BISULFATE

REACTIONS (2)
  - Urinary retention [Recovered/Resolved]
  - Product substitution issue [Recovered/Resolved]
